FAERS Safety Report 10168882 (Version 1)
Quarter: 2014Q2

REPORT INFORMATION
  Report Type: Spontaneous
  Country: US (occurrence: US)
  Receive Date: 20140513
  Receipt Date: 20140513
  Transmission Date: 20141212
  Serious: Yes (Other)
  Sender: FDA-Public Use
  Company Number: US-GE HEALTHCARE MEDICAL DIAGNOSTICS-OSCN-PR-1405S-0096

PATIENT
  Age: 41 Year
  Sex: Female
  Weight: 88.53 kg

DRUGS (6)
  1. OMNISCAN [Suspect]
     Indication: BREAST CANCER
     Route: 042
     Dates: start: 20140429, end: 20140429
  2. OMNISCAN [Suspect]
     Indication: DIAGNOSTIC PROCEDURE
  3. METFORMIN [Concomitant]
  4. CIPROFLOXACIN [Concomitant]
  5. DILAUDID [Concomitant]
  6. TAMOXIFEN [Concomitant]

REACTIONS (4)
  - Cyanosis [Recovered/Resolved]
  - Dyspnoea [Recovered/Resolved]
  - Urticaria [Recovered/Resolved]
  - Pruritus [Recovered/Resolved]
